FAERS Safety Report 7915189-7 (Version None)
Quarter: 2011Q4

REPORT INFORMATION
  Report Type: 
  Country: None (occurrence: None)
  Receive Date: 20111115
  Receipt Date: 20111110
  Transmission Date: 20120403
  Serious: Yes (Death, Other)
  Sender: FDA-Public Use
  Company Number: US-PFIZER INC-2011029044

PATIENT
  Sex: Female

DRUGS (2)
  1. XALATAN [Suspect]
     Indication: GLAUCOMA
     Dosage: UNK
  2. LUMIGAN [Suspect]
     Indication: GLAUCOMA
     Dosage: UNK

REACTIONS (3)
  - DEATH [None]
  - DEMENTIA ALZHEIMER'S TYPE [None]
  - DEMENTIA [None]
